FAERS Safety Report 19611917 (Version 1)
Quarter: 2021Q3

REPORT INFORMATION
  Report Type: Spontaneous
  Country: US (occurrence: US)
  Receive Date: 20210727
  Receipt Date: 20210727
  Transmission Date: 20211014
  Serious: No
  Sender: FDA-Public Use
  Company Number: US-ORGANON-O2107USA001431

PATIENT
  Sex: Female

DRUGS (3)
  1. FOLLISTIM [Suspect]
     Active Substance: FOLLITROPIN
     Indication: INFERTILITY
     Dosage: 400 TO 450 UNITS AS DIRECTED, 10 TO 16 DAYS
     Route: 058
     Dates: start: 20200307
  2. LEUPROLIDE ACETATE. [Concomitant]
     Active Substance: LEUPROLIDE ACETATE
     Dosage: UNK
  3. MENOPUR [Concomitant]
     Active Substance: FOLLITROPIN\LUTEINIZING HORMONE
     Dosage: UNK

REACTIONS (2)
  - Headache [Unknown]
  - Fatigue [Unknown]
